FAERS Safety Report 5278467-9 (Version None)
Quarter: 2007Q1

REPORT INFORMATION
  Report Type: 
  Country: None (occurrence: None)
  Receive Date: 20070322
  Receipt Date: 20070308
  Transmission Date: 20070707
  Serious: Yes (Other)
  Sender: FDA-Public Use
  Company Number: 1-14709921

PATIENT
  Age: 53 Year
  Sex: Male

DRUGS (5)
  1. MINOCYCLINE 100 MG (MANUFACTURER UNKNOWN) [Suspect]
     Indication: FOLLICULITIS
     Dosage: 100 MG ORALLY
     Route: 048
  2. FLUVASTATIN [Concomitant]
  3. LAMIVUDINE [Concomitant]
  4. ZIDOVUDINE [Concomitant]
  5. NELFINAVIR [Concomitant]

REACTIONS (5)
  - ACQUIRED OESOPHAGEAL WEB [None]
  - BLOOD PRESSURE INCREASED [None]
  - FOREIGN BODY TRAUMA [None]
  - OESOPHAGITIS ULCERATIVE [None]
  - PSEUDODIVERTICULAR DISEASE [None]
